FAERS Safety Report 7010204-X (Version None)
Quarter: 2010Q3

REPORT INFORMATION
  Report Type: 
  Country: None (occurrence: None)
  Receive Date: 20100923
  Receipt Date: 20100125
  Transmission Date: 20110219
  Serious: No
  Sender: FDA-Public Use
  Company Number: US-BAUSCH-2010BL000395

PATIENT
  Age: 38 Year
  Sex: Female

DRUGS (2)
  1. ERYTHROCIN 1% [Suspect]
     Indication: CORNEAL ABRASION
     Route: 047
     Dates: start: 20100124, end: 20100124
  2. TYLENOL /USA/ [Concomitant]

REACTIONS (3)
  - EYE IRRITATION [None]
  - EYE PAIN [None]
  - EYELID OEDEMA [None]
